FAERS Safety Report 14599073 (Version 1)
Quarter: 2018Q1

REPORT INFORMATION
  Report Type: Spontaneous
  Country: US (occurrence: US)
  Receive Date: 20180303
  Receipt Date: 20180303
  Transmission Date: 20180509
  Serious: No
  Sender: FDA-Public Use
  Company Number: None

PATIENT
  Age: 57 Year
  Sex: Female
  Weight: 83.25 kg

DRUGS (8)
  1. VITAMIN D3 [Concomitant]
     Active Substance: CHOLECALCIFEROL
  2. HYDROCODONE-ACETAMINOPHEN 10-325 SUBSTITUTED FOR NORCO 10-325 TABLET [Suspect]
     Active Substance: ACETAMINOPHEN\HYDROCODONE BITARTRATE
     Indication: PAIN
     Dosage: ?          QUANTITY:1 TABLET(S);?
     Route: 048
     Dates: start: 20180208, end: 20180227
  3. MULTIVITAMIN [Concomitant]
     Active Substance: VITAMINS
  4. FENTANYL TRANSDERMAL SYSTEM [Concomitant]
     Active Substance: FENTANYL
  5. NORCO (NOW PERCOCET) [Concomitant]
  6. SYNTHROID [Concomitant]
     Active Substance: LEVOTHYROXINE SODIUM
  7. CYMBALTA [Concomitant]
     Active Substance: DULOXETINE HYDROCHLORIDE
  8. PROVIGIL [Concomitant]
     Active Substance: MODAFINIL

REACTIONS (10)
  - Withdrawal syndrome [None]
  - Diarrhoea [None]
  - Product substitution issue [None]
  - Hyperhidrosis [None]
  - Restlessness [None]
  - Agitation [None]
  - Rhinorrhoea [None]
  - Lacrimation increased [None]
  - Nausea [None]
  - Pain [None]

NARRATIVE: CASE EVENT DATE: 20180208
